FAERS Safety Report 21136089 (Version 2)
Quarter: 2022Q3

REPORT INFORMATION
  Report Type: Spontaneous
  Country: JP (occurrence: JP)
  Receive Date: 20220727
  Receipt Date: 20220803
  Transmission Date: 20221027
  Serious: Yes (Other)
  Sender: FDA-Public Use
  Company Number: JP-ORGANON-O2207JPN000275J

PATIENT
  Age: 64 Year
  Sex: Male

DRUGS (2)
  1. PROPECIA [Suspect]
     Active Substance: FINASTERIDE
     Indication: Alopecia
     Dosage: UNK
     Route: 048
     Dates: start: 20220630, end: 20220711
  2. PREDNISOLONE ACETATE [Concomitant]
     Active Substance: PREDNISOLONE ACETATE
     Indication: Alopecia
     Dosage: UNK
     Route: 065
     Dates: start: 202204

REACTIONS (6)
  - Drug-induced liver injury [Recovering/Resolving]
  - Dysuria [Unknown]
  - Haematuria [Unknown]
  - Blood glucose increased [Unknown]
  - Pruritus [Unknown]
  - Testicular pain [Not Recovered/Not Resolved]

NARRATIVE: CASE EVENT DATE: 20220701
